FAERS Safety Report 9927852 (Version 3)
Quarter: 2014Q1

REPORT INFORMATION
  Report Type: Report from Study
  Country: DE (occurrence: DE)
  Receive Date: 20140227
  Receipt Date: 20140315
  Transmission Date: 20141002
  Serious: Yes (Hospitalization)
  Sender: FDA-Public Use
  Company Number: DE-ROCHE-1063759

PATIENT
  Age: 73 Year
  Sex: Male
  Weight: 94.5 kg

DRUGS (60)
  1. ONDANSETRON [Concomitant]
     Route: 065
     Dates: start: 20111011, end: 20111013
  2. ONDANSETRON [Concomitant]
     Route: 065
     Dates: start: 20110803, end: 20110805
  3. MCP AL [Concomitant]
     Route: 065
     Dates: start: 20110608, end: 20110609
  4. MCP AL [Concomitant]
     Route: 065
     Dates: start: 20110622, end: 20110623
  5. MCP AL [Concomitant]
     Route: 065
     Dates: start: 20110720, end: 20110721
  6. MCP AL [Concomitant]
     Route: 065
     Dates: start: 20110803, end: 20110805
  7. MCP AL [Concomitant]
     Route: 065
     Dates: start: 20110817, end: 20110818
  8. MCP AL [Concomitant]
     Route: 065
     Dates: start: 20110913, end: 20110915
  9. MCP AL [Concomitant]
     Route: 065
     Dates: start: 20110928, end: 20110928
  10. MCP AL [Concomitant]
     Route: 065
     Dates: start: 20110929, end: 20110930
  11. MCP AL [Concomitant]
     Route: 065
     Dates: start: 20111011, end: 20111013
  12. EMEND [Concomitant]
     Route: 065
     Dates: start: 20110607, end: 20110607
  13. EMEND [Concomitant]
     Route: 065
     Dates: start: 20110608, end: 20110609
  14. EMEND [Concomitant]
     Route: 065
     Dates: start: 20110621, end: 20110621
  15. EMEND [Concomitant]
     Route: 065
     Dates: start: 20110622, end: 20110623
  16. EMEND [Concomitant]
     Route: 065
     Dates: start: 20110719, end: 20110719
  17. EMEND [Concomitant]
     Route: 065
     Dates: start: 20110720, end: 20110721
  18. EMEND [Concomitant]
     Route: 065
     Dates: start: 20110803, end: 20110803
  19. EMEND [Concomitant]
     Route: 065
     Dates: start: 20110804, end: 20110805
  20. EMEND [Concomitant]
     Route: 065
     Dates: start: 20110816, end: 20110816
  21. EMEND [Concomitant]
     Route: 065
     Dates: start: 20110817, end: 20110818
  22. EMEND [Concomitant]
     Route: 065
     Dates: start: 20110830, end: 20110830
  23. EMEND [Concomitant]
     Route: 065
     Dates: start: 20110831, end: 20110901
  24. EMEND [Concomitant]
     Route: 065
     Dates: start: 20110913, end: 20110913
  25. EMEND [Concomitant]
     Route: 065
     Dates: start: 20110914, end: 20110915
  26. EMEND [Concomitant]
     Route: 065
     Dates: start: 20110928, end: 20110928
  27. EMEND [Concomitant]
     Route: 065
     Dates: start: 20110929, end: 20110930
  28. EMEND [Concomitant]
     Route: 065
     Dates: start: 20111011, end: 20111011
  29. EMEND [Concomitant]
     Route: 065
     Dates: start: 20111012, end: 20111013
  30. PANTOZOL (PANTOPRAZOL) [Concomitant]
     Route: 065
     Dates: start: 20110830, end: 20110902
  31. DEXAMETHASONE [Concomitant]
     Route: 065
     Dates: start: 20110428, end: 20110428
  32. DEXAMETHASONE [Concomitant]
     Route: 065
     Dates: start: 20110719, end: 20110719
  33. DEXAMETHASONE [Concomitant]
     Route: 065
     Dates: start: 20110803, end: 20110803
  34. DEXAMETHASONE [Concomitant]
     Route: 065
     Dates: start: 20110816, end: 20110818
  35. DEXAMETHASONE [Concomitant]
     Route: 065
     Dates: start: 20110830, end: 20110901
  36. DEXAMETHASONE [Concomitant]
     Route: 065
     Dates: start: 20110913, end: 20110915
  37. DEXAMETHASONE [Concomitant]
     Route: 065
     Dates: start: 20110804, end: 20110805
  38. DEXAMETHASONE [Concomitant]
     Route: 065
     Dates: start: 20110928, end: 20110930
  39. DEXAMETHASONE [Concomitant]
     Route: 065
     Dates: start: 20111011, end: 20111013
  40. DEXAMETHASONE [Concomitant]
     Route: 065
     Dates: start: 20110301, end: 20110309
  41. DEXAMETHASONE [Concomitant]
     Route: 065
     Dates: start: 20110310, end: 20110310
  42. DEXAMETHASONE [Concomitant]
     Route: 065
     Dates: start: 20110311, end: 20110311
  43. DEXAMETHASONE [Concomitant]
     Route: 065
     Dates: start: 20110312, end: 20110312
  44. BISOPROLOL [Concomitant]
     Route: 065
  45. BEVACIZUMAB [Suspect]
     Indication: GLIOBLASTOMA
     Dosage: LAST DOSE PRIOR TO SAE 17 APRIL 2012
     Route: 042
     Dates: start: 20110330, end: 20120417
  46. IRINOTECAN [Suspect]
     Indication: GLIOBLASTOMA
     Dosage: LAST DOSE PRIOR TO SAE 17 APRIL 2012
     Route: 042
     Dates: start: 20110524, end: 20120417
  47. RAMIPRIL [Concomitant]
     Route: 065
  48. COTRIM FORTE [Concomitant]
     Route: 065
     Dates: start: 20110330, end: 20110531
  49. BETAISODONA [Concomitant]
     Route: 065
     Dates: start: 20110412
  50. IBUPROFEN [Concomitant]
     Dosage: TAKEN ON DEMAND
     Route: 065
     Dates: start: 20110428
  51. IBUPROFEN [Concomitant]
     Route: 065
     Dates: start: 20110928, end: 20110928
  52. ARLEVERTAN [Concomitant]
     Route: 065
     Dates: start: 20110514, end: 20110514
  53. VOMEX A [Concomitant]
     Route: 065
     Dates: start: 20110514, end: 20110514
  54. ONDANSETRON [Concomitant]
     Route: 065
     Dates: start: 20110607, end: 20110609
  55. ONDANSETRON [Concomitant]
     Route: 065
     Dates: start: 20110621, end: 20110623
  56. ONDANSETRON [Concomitant]
     Route: 065
     Dates: start: 20110719, end: 20110723
  57. ONDANSETRON [Concomitant]
     Route: 065
     Dates: start: 20110816, end: 20110818
  58. ONDANSETRON [Concomitant]
     Route: 065
     Dates: start: 20110830, end: 20110901
  59. ONDANSETRON [Concomitant]
     Route: 065
     Dates: start: 20110913, end: 20110915
  60. ONDANSETRON [Concomitant]
     Route: 065
     Dates: start: 20110928, end: 20110930

REACTIONS (2)
  - Restrictive cardiomyopathy [Not Recovered/Not Resolved]
  - Dyspnoea [Not Recovered/Not Resolved]
